FAERS Safety Report 21391072 (Version 3)
Quarter: 2022Q3

REPORT INFORMATION
  Report Type: Spontaneous
  Country: US (occurrence: US)
  Receive Date: 20220929
  Receipt Date: 20220929
  Transmission Date: 20221027
  Serious: Yes (Life-Threatening, Hospitalization, Other)
  Sender: FDA-Public Use
  Company Number: US-MLMSERVICE-20220912-3783632-1

PATIENT
  Age: 54 Year
  Sex: Female

DRUGS (1)
  1. FENTANYL CITRATE [Suspect]
     Active Substance: FENTANYL CITRATE
     Dosage: UNK

REACTIONS (7)
  - Overdose [Recovering/Resolving]
  - Prescription drug used without a prescription [Recovering/Resolving]
  - Substance use [Recovering/Resolving]
  - Drug abuse [Recovering/Resolving]
  - Hydrocephalus [Recovering/Resolving]
  - Unresponsive to stimuli [Recovering/Resolving]
  - Brain oedema [Recovering/Resolving]
